FAERS Safety Report 13941323 (Version 1)
Quarter: 2017Q3

REPORT INFORMATION
  Report Type: Spontaneous
  Country: FR (occurrence: FR)
  Receive Date: 20170906
  Receipt Date: 20170906
  Transmission Date: 20171127
  Serious: Yes (Other)
  Sender: FDA-Public Use
  Company Number: FR-TEVA-689343ROM

PATIENT
  Sex: Female

DRUGS (1)
  1. CICLOPIROX OLAMINE TEVA 1 % [Suspect]
     Active Substance: CICLOPIROX OLAMINE
     Indication: VULVOVAGINAL MYCOTIC INFECTION
     Route: 067
     Dates: start: 20160823, end: 20160823

REACTIONS (4)
  - Product use issue [Unknown]
  - Burning sensation [Recovered/Resolved]
  - Exposure during pregnancy [Unknown]
  - Placenta praevia haemorrhage [Recovered/Resolved]
